FAERS Safety Report 12589742 (Version 3)
Quarter: 2017Q2

REPORT INFORMATION
  Report Type: Report from Study
  Country: US (occurrence: US)
  Receive Date: 20160725
  Receipt Date: 20170614
  Transmission Date: 20170830
  Serious: Yes (Death, Hospitalization, Other)
  Sender: FDA-Public Use
  Company Number: US-ASTRAZENECA-2016SE00537

PATIENT
  Age: 787 Month
  Sex: Male

DRUGS (14)
  1. LOVENOX [Concomitant]
     Active Substance: ENOXAPARIN SODIUM
     Dosage: EVERY 12 HOURS
     Route: 058
     Dates: start: 20160115, end: 201603
  2. GABAPENTIN. [Concomitant]
     Active Substance: GABAPENTIN
  3. PROTOPIC [Concomitant]
     Active Substance: TACROLIMUS
  4. FINASTERIDE. [Concomitant]
     Active Substance: FINASTERIDE
  5. TAGRISSO [Suspect]
     Active Substance: OSIMERTINIB
     Indication: LUNG NEOPLASM MALIGNANT
     Route: 048
     Dates: start: 20151229, end: 201601
  6. DEXAMETHASONE. [Concomitant]
     Active Substance: DEXAMETHASONE
  7. COLACE [Concomitant]
     Active Substance: DOCUSATE SODIUM
  8. REMERON [Concomitant]
     Active Substance: MIRTAZAPINE
  9. TAGRISSO [Suspect]
     Active Substance: OSIMERTINIB
     Indication: LUNG NEOPLASM MALIGNANT
     Route: 048
     Dates: start: 2016
  10. CITALOPRAM [Concomitant]
     Active Substance: CITALOPRAM HYDROBROMIDE
  11. SENNA PLUS [Concomitant]
     Active Substance: DOCUSATE SODIUM\SENNOSIDES\SENNOSIDES A AND B
  12. TRAZODONE [Concomitant]
     Active Substance: TRAZODONE HYDROCHLORIDE
  13. PANTOPRAZOLE [Concomitant]
     Active Substance: PANTOPRAZOLE
  14. CELEXA [Concomitant]
     Active Substance: CITALOPRAM HYDROBROMIDE

REACTIONS (22)
  - Burning sensation [Unknown]
  - Muscular weakness [Unknown]
  - Insomnia [Recovering/Resolving]
  - Tumour marker increased [Unknown]
  - Neoplasm [Unknown]
  - Brain neoplasm [Unknown]
  - Decreased appetite [Recovering/Resolving]
  - Weight decreased [Unknown]
  - Drug dose omission [Unknown]
  - Thrombosis [Recovered/Resolved]
  - Tumour compression [Not Recovered/Not Resolved]
  - Death [Fatal]
  - Cellulitis [Unknown]
  - Platelet disorder [Unknown]
  - Fatigue [Unknown]
  - Gait disturbance [Unknown]
  - Fall [Unknown]
  - Wound [Unknown]
  - Pain in extremity [Unknown]
  - Swelling [Unknown]
  - Positron emission tomogram abnormal [Unknown]
  - Oedema peripheral [Not Recovered/Not Resolved]

NARRATIVE: CASE EVENT DATE: 201601
